FAERS Safety Report 8521590-3 (Version None)
Quarter: 2012Q3

REPORT INFORMATION
  Report Type: 
  Country: None (occurrence: None)
  Receive Date: 20120719
  Receipt Date: 20120709
  Transmission Date: 20120928
  Serious: Yes (Other)
  Sender: FDA-Public Use
  Company Number: JP-VERTEX PHARMACEUTICALS INC.-AE-2012-007780

PATIENT
  Age: 66 Year
  Sex: Male

DRUGS (18)
  1. TELAVIC (TELAPREVIR) [Suspect]
     Route: 048
     Dates: start: 20120424
  2. PEGINTERFERON ALFA-2B [Concomitant]
     Indication: HEPATITIS C
     Route: 058
     Dates: start: 20120324
  3. TELAVIC (TELAPREVIR) [Suspect]
     Indication: HEPATITIS C
     Route: 048
     Dates: start: 20120324, end: 20120324
  4. REBETOL [Concomitant]
     Route: 048
     Dates: start: 20120502
  5. PEGINTERFERON ALFA-2B [Concomitant]
     Route: 058
     Dates: start: 20120505
  6. REBETOL [Concomitant]
     Route: 048
     Dates: start: 20120421
  7. ALLEGRA [Concomitant]
     Route: 048
     Dates: start: 20120323
  8. RIKKUNSHITO [Concomitant]
     Route: 048
     Dates: start: 20120511
  9. RIKKUNSHITO [Concomitant]
     Route: 048
     Dates: start: 20120323
  10. TANNALBIN [Concomitant]
     Route: 048
     Dates: start: 20120519
  11. LAC-B [Concomitant]
     Route: 048
     Dates: start: 20120519
  12. REBETOL [Concomitant]
     Indication: HEPATITIS C
     Route: 048
     Dates: start: 20120324
  13. PEGINTERFERON ALFA-2B [Concomitant]
     Route: 058
  14. LOPERAMIDE HYDROCHLORIDE [Concomitant]
     Dates: start: 20120502, end: 20120508
  15. RIKKUNSHITO [Concomitant]
     Route: 048
     Dates: start: 20120323
  16. TELAVIC (TELAPREVIR) [Suspect]
     Route: 048
     Dates: start: 20120428
  17. REBETOL [Concomitant]
     Route: 048
     Dates: start: 20120424
  18. ALLEGRA [Concomitant]
     Route: 048

REACTIONS (1)
  - WHITE BLOOD CELL COUNT DECREASED [None]
